FAERS Safety Report 8123289-4 (Version None)
Quarter: 2012Q1

REPORT INFORMATION
  Report Type: 
  Country: None (occurrence: None)
  Receive Date: 20120208
  Receipt Date: 20120125
  Transmission Date: 20120608
  Serious: Yes (Death, Hospitalization)
  Sender: FDA-Public Use
  Company Number: US-MUTUAL PHARMACEUTICAL COMPANY, INC.-CLHC20120009

PATIENT
  Age: 43 Year
  Sex: Male

DRUGS (1)
  1. COLCHICINE [Suspect]
     Indication: PRODUCT USED FOR UNKNOWN INDICATION
     Route: 048
     Dates: end: 20100101

REACTIONS (16)
  - BLOOD CREATININE INCREASED [None]
  - LIVEDO RETICULARIS [None]
  - ABDOMINAL PAIN [None]
  - VOMITING [None]
  - PANCREATITIS [None]
  - PYREXIA [None]
  - INTENTIONAL DRUG MISUSE [None]
  - HAEMATOCRIT DECREASED [None]
  - CARDIAC ENZYMES INCREASED [None]
  - BLOOD BICARBONATE DECREASED [None]
  - DIARRHOEA [None]
  - BLOOD PH DECREASED [None]
  - HYPOTENSION [None]
  - WHITE BLOOD CELL COUNT INCREASED [None]
  - TACHYCARDIA [None]
  - BLOOD LACTIC ACID INCREASED [None]
